FAERS Safety Report 23176061 (Version 1)
Quarter: 2023Q4

REPORT INFORMATION
  Report Type: Spontaneous
  Country: BE (occurrence: BE)
  Receive Date: 20231113
  Receipt Date: 20231113
  Transmission Date: 20240110
  Serious: Yes (Hospitalization, Other)
  Sender: FDA-Public Use
  Company Number: BE-GSKCCFEMEA-Case-01850195_AE-77111

PATIENT

DRUGS (1)
  1. MOMELOTINIB [Suspect]
     Active Substance: MOMELOTINIB
     Indication: Myeloproliferative neoplasm
     Dosage: UNK

REACTIONS (2)
  - Urinary tract infection [Unknown]
  - Ventricular tachycardia [Unknown]
